FAERS Safety Report 23911156 (Version 1)
Quarter: 2024Q2

REPORT INFORMATION
  Report Type: Spontaneous
  Country: US (occurrence: None)
  Receive Date: 20240526
  Receipt Date: 20240526
  Transmission Date: 20240716
  Serious: Yes (Disabling, Other)
  Sender: FDA-Public Use
  Company Number: None

PATIENT
  Age: 39 Year
  Sex: Female
  Weight: 68.85 kg

DRUGS (9)
  1. LAMOTRIGINE EXTENDED RELEASE [Suspect]
     Active Substance: LAMOTRIGINE
     Indication: Affective disorder
     Dosage: 1 TABLET AT BEDTIME ORAL
     Route: 048
  2. OMEPRAZOLE [Suspect]
     Active Substance: DONEPEZIL HYDROCHLORIDE\OMEPRAZOLE\OMEPRAZOLE MAGNESIUM
  3. LEXAPRO [Suspect]
     Active Substance: ESCITALOPRAM OXALATE
  4. VENLAFAXINE [Suspect]
     Active Substance: VENLAFAXINE HYDROCHLORIDE
  5. DOXEPIN [Suspect]
     Active Substance: DOXEPIN
  6. VITASSIUM SALTSTICK [Concomitant]
  7. LIQUID IV [Concomitant]
  8. VITAMIN D [Concomitant]
     Active Substance: VITAMIN D NOS
  9. TYLENOL [Concomitant]
     Active Substance: ACETAMINOPHEN

REACTIONS (35)
  - Adverse drug reaction [None]
  - Arthralgia [None]
  - Myalgia [None]
  - Pain in extremity [None]
  - Pain in jaw [None]
  - Arthralgia [None]
  - Flank pain [None]
  - Abdominal pain upper [None]
  - Musculoskeletal stiffness [None]
  - Malaise [None]
  - Anger [None]
  - Headache [None]
  - Facial pain [None]
  - Diarrhoea [None]
  - Keratitis [None]
  - Photophobia [None]
  - Heart rate increased [None]
  - Rash erythematous [None]
  - Scar [None]
  - Pruritus [None]
  - Vomiting [None]
  - Anal incontinence [None]
  - Dry eye [None]
  - Lymph node pain [None]
  - Fatigue [None]
  - Rash [None]
  - Sinus pain [None]
  - Gingival pain [None]
  - Toothache [None]
  - Decreased appetite [None]
  - Memory impairment [None]
  - Brain fog [None]
  - Nightmare [None]
  - Drug interaction [None]
  - Eye pain [None]

NARRATIVE: CASE EVENT DATE: 20240516
